FAERS Safety Report 5074494-5 (Version None)
Quarter: 2006Q3

REPORT INFORMATION
  Report Type: 
  Country: None (occurrence: None)
  Receive Date: 20060803
  Receipt Date: 20060719
  Transmission Date: 20061208
  Serious: Yes (Death)
  Sender: FDA-Public Use
  Company Number: 2006BI008156

PATIENT
  Age: 80 Year
  Sex: Male
  Weight: 67.586 kg

DRUGS (2)
  1. ZEVALIN [Suspect]
     Indication: NON-HODGKIN'S LYMPHOMA
     Dosage: 1X; IV
     Route: 042
     Dates: start: 20060601, end: 20060601
  2. RITUXAN [Concomitant]

REACTIONS (1)
  - NO ADVERSE DRUG EFFECT [None]
